FAERS Safety Report 9539955 (Version 1)
Quarter: 2013Q2

REPORT INFORMATION
  Report Type: Spontaneous
  Country: US (occurrence: None)
  Receive Date: 20130524
  Receipt Date: 20130524
  Transmission Date: 20140414
  Serious: Yes (Other)
  Sender: FDA-Public Use
  Company Number: PHHY2013US001629

PATIENT
  Age: 30 Year
  Sex: Female
  Weight: 56.7 kg

DRUGS (3)
  1. GILENYA [Suspect]
     Route: 048
  2. VITAMIN D (ERGOCALCIFEROL) CAPSULE [Concomitant]
  3. NORETHINDRONE (NORETHISTERONE) TABLET [Concomitant]

REACTIONS (1)
  - Depression [None]
